FAERS Safety Report 5948044-2 (Version None)
Quarter: 2008Q4

REPORT INFORMATION
  Report Type: 
  Country: None (occurrence: None)
  Receive Date: 20081107
  Receipt Date: 20081022
  Transmission Date: 20090506
  Serious: Yes (Death, Hospitalization)
  Sender: FDA-Public Use
  Company Number: 2008PL000174

PATIENT
  Age: 21 Year
  Sex: Male

DRUGS (2)
  1. AZATHIOPRINE [Suspect]
     Indication: COLITIS ULCERATIVE
     Dosage: 100 MG;
  2. METHYLPREDNISOLONE 16MG TAB [Concomitant]

REACTIONS (9)
  - CLOSTRIDIAL INFECTION [None]
  - GAS GANGRENE [None]
  - HYPOPROTEINAEMIA [None]
  - MULTI-ORGAN FAILURE [None]
  - MUSCLE NECROSIS [None]
  - OEDEMA PERIPHERAL [None]
  - PANCYTOPENIA [None]
  - RHABDOMYOLYSIS [None]
  - SKIN EROSION [None]
